FAERS Safety Report 15797840 (Version 1)
Quarter: 2019Q1

REPORT INFORMATION
  Report Type: Spontaneous
  Country: US (occurrence: US)
  Receive Date: 20190108
  Receipt Date: 20190108
  Transmission Date: 20190417
  Serious: No
  Sender: FDA-Public Use
  Company Number: None

PATIENT
  Age: 57 Year
  Sex: Male
  Weight: 87.75 kg

DRUGS (1)
  1. TAMIFLU [Suspect]
     Active Substance: OSELTAMIVIR PHOSPHATE
     Indication: ANTIVIRAL PROPHYLAXIS
     Dates: start: 20181226, end: 20181231

REACTIONS (4)
  - Abdominal distension [None]
  - Hypoaesthesia [None]
  - Paraesthesia [None]
  - Hyperaesthesia [None]

NARRATIVE: CASE EVENT DATE: 20181231
